FAERS Safety Report 10197017 (Version 1)
Quarter: 2014Q2

REPORT INFORMATION
  Report Type: Spontaneous
  Country: JP (occurrence: JP)
  Receive Date: 20140527
  Receipt Date: 20140527
  Transmission Date: 20141212
  Serious: Yes (Other)
  Sender: FDA-Public Use
  Company Number: JP-ASTELLAS-2014JP005944

PATIENT
  Age: 9 Year
  Sex: Female

DRUGS (4)
  1. PROGRAF [Suspect]
     Indication: COLITIS ULCERATIVE
     Dosage: UNKNOWN
     Route: 065
  2. MESALAZINE [Concomitant]
     Indication: COLITIS ULCERATIVE
     Dosage: UNKNOWN
     Route: 065
  3. PREDNISOLONE [Concomitant]
     Indication: COLITIS ULCERATIVE
     Dosage: UNKNOWN
     Route: 065
  4. INFLIXIMAB [Concomitant]
     Indication: COLITIS ULCERATIVE
     Dosage: UNKNOWN
     Route: 065

REACTIONS (2)
  - Colitis ulcerative [Unknown]
  - Drug ineffective for unapproved indication [Unknown]
